FAERS Safety Report 13650481 (Version 1)
Quarter: 2017Q2

REPORT INFORMATION
  Report Type: Spontaneous
  Country: US (occurrence: US)
  Receive Date: 20170614
  Receipt Date: 20170614
  Transmission Date: 20170830
  Serious: Yes (Other)
  Sender: FDA-Public Use
  Company Number: US-ROCHE-1947889

PATIENT
  Age: 61 Year
  Sex: Male
  Weight: 63.11 kg

DRUGS (1)
  1. TECENTRIQ [Suspect]
     Active Substance: ATEZOLIZUMAB
     Indication: LUNG NEOPLASM MALIGNANT
     Route: 042
     Dates: start: 20170601

REACTIONS (8)
  - Chills [Recovered/Resolved]
  - Hyperhidrosis [Not Recovered/Not Resolved]
  - Myalgia [Recovering/Resolving]
  - Hypotension [Recovering/Resolving]
  - Dizziness [Recovered/Resolved]
  - Abasia [Recovered/Resolved]
  - Influenza like illness [Not Recovered/Not Resolved]
  - Pyrexia [Recovering/Resolving]

NARRATIVE: CASE EVENT DATE: 20170607
